FAERS Safety Report 25509351 (Version 3)
Quarter: 2025Q3

REPORT INFORMATION
  Report Type: Spontaneous
  Country: EU (occurrence: EU)
  Receive Date: 20250703
  Receipt Date: 20250729
  Transmission Date: 20251020
  Serious: Yes (Hospitalization, Other)
  Sender: AUROBINDO
  Company Number: EU-ADIENNEP-2022AD000847

PATIENT
  Age: 55 Year
  Sex: Female

DRUGS (25)
  1. MYCOPHENOLIC ACID [Suspect]
     Active Substance: MYCOPHENOLIC ACID
     Indication: Prophylaxis against graft versus host disease
     Route: 065
     Dates: end: 201901
  2. THIOTEPA [Suspect]
     Active Substance: THIOTEPA
     Indication: Cord blood transplant therapy
     Route: 065
     Dates: start: 201808, end: 201808
  3. FLUDARABINE [Suspect]
     Active Substance: FLUDARABINE PHOSPHATE
     Indication: Cord blood transplant therapy
     Route: 065
     Dates: start: 201808, end: 201808
  4. BUSULFAN [Suspect]
     Active Substance: BUSULFAN
     Indication: Cord blood transplant therapy
     Route: 065
     Dates: start: 201808, end: 201808
  5. CYCLOPHOSPHAMIDE [Suspect]
     Active Substance: CYCLOPHOSPHAMIDE
     Indication: Prophylaxis against graft versus host disease
     Route: 065
     Dates: start: 201901, end: 201901
  6. CYCLOSPORINE [Suspect]
     Active Substance: CYCLOSPORINE
     Indication: Prophylaxis against graft versus host disease
     Route: 065
     Dates: start: 201901, end: 201901
  7. PONATINIB [Suspect]
     Active Substance: PONATINIB
     Indication: Product used for unknown indication
     Route: 065
     Dates: start: 201812
  8. PONATINIB [Suspect]
     Active Substance: PONATINIB
     Indication: Philadelphia chromosome positive
     Dosage: 45 MILLIGRAM, ONCE A DAY (45 MILLIGRAM, QD)
     Route: 065
     Dates: start: 2018, end: 2018
  9. PONATINIB [Suspect]
     Active Substance: PONATINIB
     Indication: B-cell type acute leukaemia
     Dosage: 30 MILLIGRAM, ONCE A DAY (30 MILLIGRAM, QD (TAPERED DOSE))
     Route: 065
     Dates: start: 2018, end: 2018
  10. PONATINIB [Suspect]
     Active Substance: PONATINIB
     Route: 065
     Dates: start: 201812, end: 201911
  11. PONATINIB [Suspect]
     Active Substance: PONATINIB
     Dosage: 15 MILLIGRAM, ONCE A DAY (15 MILLIGRAM, QD)
     Route: 065
     Dates: start: 2020
  12. ICLUSIG [Suspect]
     Active Substance: PONATINIB HYDROCHLORIDE
     Indication: Product used for unknown indication
     Route: 065
     Dates: start: 201812
  13. ICLUSIG [Suspect]
     Active Substance: PONATINIB HYDROCHLORIDE
     Indication: Philadelphia chromosome positive
     Dosage: 30 MILLIGRAM, ONCE A DAY (30 MG, QD (1/DAY))
     Route: 065
     Dates: start: 2018, end: 2018
  14. ICLUSIG [Suspect]
     Active Substance: PONATINIB HYDROCHLORIDE
     Indication: B-cell type acute leukaemia
     Route: 065
     Dates: start: 201812, end: 201911
  15. ICLUSIG [Suspect]
     Active Substance: PONATINIB HYDROCHLORIDE
     Dosage: 45 MILLIGRAM, ONCE A DAY
     Route: 065
     Dates: start: 2018, end: 2018
  16. ICLUSIG [Suspect]
     Active Substance: PONATINIB HYDROCHLORIDE
     Dosage: 15 MILLIGRAM, ONCE A DAY (15 MG, QD (1/DAY))
     Route: 065
     Dates: start: 2020
  17. MITOXANTRONE HYDROCHLORIDE [Suspect]
     Active Substance: MITOXANTRONE HYDROCHLORIDE
     Indication: Philadelphia chromosome positive
     Route: 065
     Dates: start: 2018
  18. MITOXANTRONE HYDROCHLORIDE [Suspect]
     Active Substance: MITOXANTRONE HYDROCHLORIDE
     Indication: B-cell type acute leukaemia
  19. CYTARABINE [Suspect]
     Active Substance: CYTARABINE
     Indication: Philadelphia chromosome positive
     Route: 065
     Dates: start: 2018
  20. CYTARABINE [Suspect]
     Active Substance: CYTARABINE
     Indication: B-cell type acute leukaemia
  21. DASATINIB [Suspect]
     Active Substance: DASATINIB
     Indication: Philadelphia chromosome positive
     Route: 065
     Dates: start: 2018
  22. DASATINIB [Suspect]
     Active Substance: DASATINIB
     Indication: B-cell type acute leukaemia
  23. BLINATUMOMAB [Suspect]
     Active Substance: BLINATUMOMAB
     Indication: Philadelphia chromosome positive
     Route: 065
     Dates: start: 2020
  24. BLINATUMOMAB [Suspect]
     Active Substance: BLINATUMOMAB
     Indication: B-cell type acute leukaemia
  25. MYCOPHENOLIC ACID [Suspect]
     Active Substance: MYCOPHENOLIC ACID
     Indication: Prophylaxis against graft versus host disease
     Route: 065
     Dates: start: 201901

REACTIONS (4)
  - Haemophagocytic lymphohistiocytosis [Recovered/Resolved]
  - Acute kidney injury [Unknown]
  - Haematotoxicity [Unknown]
  - Drug ineffective [Unknown]

NARRATIVE: CASE EVENT DATE: 20180101
